FAERS Safety Report 16687886 (Version 1)
Quarter: 2019Q3

REPORT INFORMATION
  Report Type: Report from Study
  Country: BR (occurrence: BR)
  Receive Date: 20190809
  Receipt Date: 20190809
  Transmission Date: 20191004
  Serious: Yes (Hospitalization)
  Sender: FDA-Public Use
  Company Number: BR-AMERICAN REGENT INC-2019001680

PATIENT
  Age: 40 Year
  Sex: Female
  Weight: 58 kg

DRUGS (8)
  1. VENOFER [Suspect]
     Active Substance: IRON SUCROSE
     Indication: ANAEMIA
     Dosage: UNK, UNK
     Route: 042
     Dates: start: 20190503, end: 201906
  2. VITAMIN C [Concomitant]
     Active Substance: ASCORBIC ACID
     Indication: METABOLIC SURGERY
     Dosage: UNK
  3. EUTHYROX [Concomitant]
     Active Substance: LEVOTHYROXINE SODIUM
     Indication: THYROID DISORDER
     Dosage: UNK
  4. MALTOFER (FERRIC HYDROXIDE POLYMALTOSE COMPLEX) [Suspect]
     Active Substance: IRON POLYMALTOSE
     Indication: ANAEMIA
     Dosage: 100 MILLIGRAM (1 TABLET), TID
     Route: 048
     Dates: start: 2019, end: 201906
  5. DEFERASIROX. [Suspect]
     Active Substance: DEFERASIROX
     Indication: LIVER IRON CONCENTRATION ABNORMAL
     Dosage: 500 MILLIGRAM, QD (^COULD NOT TAKE IT EVERY DAY^)
     Dates: start: 201906
  6. ENTYVIO [Suspect]
     Active Substance: VEDOLIZUMAB
     Indication: CROHN^S DISEASE
     Dosage: 300 MILLIGRAM
     Dates: start: 20190503
  7. ENTYVIO [Suspect]
     Active Substance: VEDOLIZUMAB
     Dosage: 300 MILLIGRAM
     Dates: start: 201905
  8. ENTYVIO [Suspect]
     Active Substance: VEDOLIZUMAB
     Dosage: 300 MILLIGRAM
     Dates: start: 201906

REACTIONS (14)
  - Liver iron concentration abnormal [Not Recovered/Not Resolved]
  - Muscle spasms [Recovered/Resolved]
  - Weight increased [Recovered/Resolved]
  - Alopecia [Not Recovered/Not Resolved]
  - Influenza like illness [Recovered/Resolved]
  - Asthenia [Recovered/Resolved]
  - Diarrhoea [Recovered/Resolved]
  - Flatulence [Recovered/Resolved]
  - Condition aggravated [Not Recovered/Not Resolved]
  - Dizziness [Recovered/Resolved]
  - Abdominal discomfort [Recovered/Resolved]
  - Nausea [Recovered/Resolved]
  - Abdominal pain [Recovered/Resolved]
  - Nail disorder [Not Recovered/Not Resolved]

NARRATIVE: CASE EVENT DATE: 2019
